FAERS Safety Report 6849059-2 (Version None)
Quarter: 2010Q3

REPORT INFORMATION
  Report Type: 
  Country: None (occurrence: None)
  Receive Date: 20100716
  Receipt Date: 20070926
  Transmission Date: 20110219
  Serious: No
  Sender: FDA-Public Use
  Company Number: US-PFIZER INC-2007081214

PATIENT
  Sex: Female
  Weight: 67.727 kg

DRUGS (6)
  1. CHANTIX [Suspect]
     Indication: SMOKING CESSATION THERAPY
     Dates: start: 20070901
  2. GEODON [Concomitant]
     Indication: BIPOLAR DISORDER
  3. WELLBUTRIN [Concomitant]
  4. TOPAMAX [Concomitant]
     Indication: MIGRAINE
  5. BENICAR [Concomitant]
  6. CLONIDINE [Concomitant]
     Indication: HYPERTENSION

REACTIONS (2)
  - DRUG INEFFECTIVE [None]
  - WEIGHT INCREASED [None]
